FAERS Safety Report 16884630 (Version 1)
Quarter: 2019Q4

REPORT INFORMATION
  Report Type: Spontaneous
  Country: US (occurrence: US)
  Receive Date: 20190808
  Receipt Date: 20190808
  Transmission Date: 20200122
  Serious: Yes (Disabling, Other)
  Sender: FDA-Public Use
  Company Number: None

PATIENT
  Age: 79 Year
  Sex: Male
  Weight: 74.84 kg

DRUGS (1)
  1. CVS HEALTH LUBRICANT EYE OINTMENT [MINERAL OIL\PETROLATUM] [Suspect]
     Active Substance: MINERAL OIL\PETROLATUM
     Indication: DRY EYE
     Route: 031
     Dates: start: 20190530, end: 20190712

REACTIONS (8)
  - Product quality issue [None]
  - Lacrimation increased [None]
  - Recalled product administered [None]
  - Blindness unilateral [None]
  - Ocular hyperaemia [None]
  - Eye swelling [None]
  - Eye irritation [None]
  - Corneal scar [None]

NARRATIVE: CASE EVENT DATE: 20190530
